FAERS Safety Report 25644137 (Version 1)
Quarter: 2025Q3

REPORT INFORMATION
  Report Type: Other
  Country: CA (occurrence: CA)
  Receive Date: 20250805
  Receipt Date: 20250805
  Transmission Date: 20251020
  Serious: Yes (Hospitalization, Other)
  Sender: ANI
  Company Number: CA-ANIPHARMA-023937

PATIENT
  Age: 80 Year
  Sex: Male

DRUGS (7)
  1. PERINDOPRIL [Suspect]
     Active Substance: PERINDOPRIL
     Indication: Cardiac failure
  2. METOPROLOL [Concomitant]
     Active Substance: METOPROLOL
     Indication: Cardiac failure
  3. DAPAGLIFLOZIN [Concomitant]
     Active Substance: DAPAGLIFLOZIN
     Indication: Cardiac failure
  4. SPIRONOLACTONE [Concomitant]
     Active Substance: SPIRONOLACTONE
     Indication: Cardiac failure
  5. FUROSEMIDE [Concomitant]
     Active Substance: FUROSEMIDE
     Indication: Oedema
  6. ESCITALOPRAM [Concomitant]
     Active Substance: ESCITALOPRAM OXALATE
     Indication: Product used for unknown indication
  7. DABIGATRAN ETEXILATE MESYLATE [Concomitant]
     Active Substance: DABIGATRAN ETEXILATE MESYLATE
     Indication: Anticoagulant therapy

REACTIONS (2)
  - Cardiogenic shock [Recovering/Resolving]
  - Sinus bradycardia [Recovering/Resolving]
